FAERS Safety Report 21548178 (Version 2)
Quarter: 2022Q4

REPORT INFORMATION
  Report Type: Spontaneous
  Country: US (occurrence: US)
  Receive Date: 20221103
  Receipt Date: 20221118
  Transmission Date: 20230112
  Serious: Yes (Other)
  Sender: FDA-Public Use
  Company Number: US-TEVA-2022-US-2821406

PATIENT
  Age: 65 Year
  Sex: Male

DRUGS (6)
  1. OXYCODONE [Suspect]
     Active Substance: OXYCODONE
     Indication: Procedural pain
     Dosage: OXYCODONE 5MG EVERY FOUR HOURS AS NEEDED FOR PAIN LEVEL 1-5 AND 10MG FOR PAIN LEVEL 6-10 , OXYCODONE
     Route: 065
  2. BUPRENORPHINE [Suspect]
     Active Substance: BUPRENORPHINE
     Indication: Procedural pain
     Dosage: 16 MILLIGRAM DAILY;
     Route: 065
  3. BUPRENORPHINE [Suspect]
     Active Substance: BUPRENORPHINE
     Indication: Procedural pain
     Dosage: 32 MILLIGRAM DAILY; THE PATIENT INCREASED HIS BUPRENORPHINE TO 32 MG DAILY WITHOUT CONSULTING HIS BU
     Route: 065
  4. BUPRENORPHINE [Suspect]
     Active Substance: BUPRENORPHINE
     Indication: Procedural pain
     Dosage: 20 MILLIGRAM DAILY; BUPRENORPHINE DOSE WAS GRADUALLY DECREASED TO 20 MG DAILY
     Route: 065
  5. MELOXICAM [Concomitant]
     Active Substance: MELOXICAM
     Indication: Procedural pain
     Dosage: 15 MILLIGRAM DAILY;
     Route: 065
  6. ASPIRIN [Concomitant]
     Active Substance: ASPIRIN
     Indication: Procedural pain
     Dosage: 325 MILLIGRAM DAILY;
     Route: 065

REACTIONS (2)
  - Rebound effect [Recovering/Resolving]
  - Intentional product misuse [Unknown]
